FAERS Safety Report 6437340-0 (Version None)
Quarter: 2009Q4

REPORT INFORMATION
  Report Type: 
  Country: None (occurrence: None)
  Receive Date: 20091112
  Receipt Date: 20091012
  Transmission Date: 20100525
  Serious: No
  Sender: FDA-Public Use
  Company Number: US-BAYER-200927134NA

PATIENT
  Age: 24 Year
  Sex: Female
  Weight: 68 kg

DRUGS (4)
  1. MIRENA [Suspect]
     Indication: CONTRACEPTION
     Route: 015
     Dates: start: 20090309
  2. ERYTHROMYCIN [Concomitant]
  3. OXYPROXIN [Concomitant]
  4. VITAMIN TAB [Concomitant]

REACTIONS (11)
  - ABDOMINAL DISTENSION [None]
  - ABDOMINAL PAIN [None]
  - BREAST ENLARGEMENT [None]
  - DYSPAREUNIA [None]
  - FATIGUE [None]
  - FEELING ABNORMAL [None]
  - FEELING OF BODY TEMPERATURE CHANGE [None]
  - JOINT SWELLING [None]
  - MENSTRUATION DELAYED [None]
  - NAUSEA [None]
  - VASODILATATION [None]
